FAERS Safety Report 6865560-X (Version None)
Quarter: 2010Q3

REPORT INFORMATION
  Report Type: 
  Country: None (occurrence: None)
  Receive Date: 20100721
  Receipt Date: 20080425
  Transmission Date: 20110219
  Serious: No
  Sender: FDA-Public Use
  Company Number: US-PFIZER INC-2008037357

PATIENT
  Sex: Female

DRUGS (1)
  1. CHANTIX [Suspect]
     Indication: SMOKING CESSATION THERAPY
     Dates: start: 20080401

REACTIONS (4)
  - AFFECT LABILITY [None]
  - DEPRESSION [None]
  - DISTURBANCE IN ATTENTION [None]
  - MENTAL DISORDER [None]
